FAERS Safety Report 25282937 (Version 1)
Quarter: 2025Q2

REPORT INFORMATION
  Report Type: Report from Study
  Country: US (occurrence: US)
  Receive Date: 20250508
  Receipt Date: 20250508
  Transmission Date: 20250716
  Serious: No
  Sender: ACADIA PHARMACEUTICALS
  Company Number: US-ACADIA PHARMACEUTICALS INC.-ACA-2025-PIM-005112

PATIENT
  Age: 72 Year
  Sex: Male

DRUGS (13)
  1. NUPLAZID [Suspect]
     Active Substance: PIMAVANSERIN TARTRATE
     Indication: Parkinson^s disease
     Dosage: 34 MILLIGRAM, QD
     Route: 048
     Dates: start: 20250326
  2. LORATADINE [Concomitant]
     Active Substance: LORATADINE
  3. AMANTADINE [Concomitant]
     Active Substance: AMANTADINE
  4. AMOXICILLIN [Concomitant]
     Active Substance: AMOXICILLIN
  5. CARBIDOPA\LEVODOPA [Concomitant]
     Active Substance: CARBIDOPA\LEVODOPA
  6. DONEPEZIL [Concomitant]
     Active Substance: DONEPEZIL
  7. FAMOTIDINE [Concomitant]
     Active Substance: FAMOTIDINE
  8. IPRATROPIUM [Concomitant]
     Active Substance: IPRATROPIUM
  9. METHOCARBAMOL [Concomitant]
     Active Substance: METHOCARBAMOL
  10. OXYCODONE [Concomitant]
     Active Substance: OXYCODONE
  11. QUETIAPINE [Concomitant]
     Active Substance: QUETIAPINE
  12. SILDENAFIL [Concomitant]
     Active Substance: SILDENAFIL
  13. TRIAMCINOLONE [Concomitant]
     Active Substance: TRIAMCINOLONE

REACTIONS (4)
  - Insomnia [Not Recovered/Not Resolved]
  - Sleep terror [Not Recovered/Not Resolved]
  - Muscle rigidity [Not Recovered/Not Resolved]
  - Therapeutic product effect decreased [Not Recovered/Not Resolved]

NARRATIVE: CASE EVENT DATE: 20250423
